FAERS Safety Report 12844222 (Version 1)
Quarter: 2016Q4

REPORT INFORMATION
  Report Type: Spontaneous
  Country: US (occurrence: US)
  Receive Date: 20161012
  Receipt Date: 20161012
  Transmission Date: 20170207
  Serious: No
  Sender: FDA-Public Use
  Company Number: None

PATIENT
  Age: 52 Year
  Sex: Male
  Weight: 103.5 kg

DRUGS (1)
  1. NANDROLONE DECANOTE [Suspect]
     Active Substance: NANDROLONE DECANOATE
     Indication: ARTHRALGIA
     Dosage: ?          QUANTITY:10 INJECTION(S);OTHER FREQUENCY:ONCE A WEEK;?
     Route: 030
     Dates: start: 20160704, end: 20160816

REACTIONS (2)
  - Mood altered [None]
  - Asthenia [None]

NARRATIVE: CASE EVENT DATE: 20160705
